FAERS Safety Report 4695748-8 (Version None)
Quarter: 2005Q2

REPORT INFORMATION
  Report Type: 
  Country: None (occurrence: None)
  Receive Date: 20050616
  Receipt Date: 20050616
  Transmission Date: 20051028
  Serious: Yes (Life-Threatening)
  Sender: FDA-Public Use
  Company Number: None

PATIENT
  Age: 54 Year
  Sex: Female
  Weight: 58.9676 kg

DRUGS (1)
  1. PREMARIN [Suspect]
     Indication: NEOPLASM MALIGNANT
     Dosage: 1 A DAY (ORAL)
     Route: 048
     Dates: start: 20030101

REACTIONS (1)
  - BREAST CANCER [None]
